FAERS Safety Report 17920194 (Version 1)
Quarter: 2020Q2

REPORT INFORMATION
  Report Type: Spontaneous
  Country: GR (occurrence: GR)
  Receive Date: 20200620
  Receipt Date: 20200620
  Transmission Date: 20200714
  Serious: Yes (Hospitalization, Other)
  Sender: FDA-Public Use
  Company Number: GR-ACCORD-186150

PATIENT
  Age: 13 Month
  Sex: Female

DRUGS (2)
  1. ARIPIPRAZOLE. [Suspect]
     Active Substance: ARIPIPRAZOLE
     Indication: PRODUCT USED FOR UNKNOWN INDICATION
     Dosage: THE GIRL ACCIDENTALLY INGESTED ARIPIPRAZOLE
     Route: 048
  2. ARIPIPRAZOLE. [Suspect]
     Active Substance: ARIPIPRAZOLE
     Indication: PRODUCT USED FOR UNKNOWN INDICATION
     Dosage: UNK, 1X
     Route: 048

REACTIONS (6)
  - Stupor [Recovered/Resolved]
  - Pyrexia [Recovered/Resolved]
  - Toxic encephalopathy [Recovered/Resolved]
  - Hyporesponsive to stimuli [Recovered/Resolved]
  - Accidental exposure to product by child [Unknown]
  - Somnolence [Recovered/Resolved]
